FAERS Safety Report 23734243 (Version 1)
Quarter: 2024Q2

REPORT INFORMATION
  Report Type: Spontaneous
  Country: CZ (occurrence: CZ)
  Receive Date: 20240412
  Receipt Date: 20240412
  Transmission Date: 20240716
  Serious: Yes (Other)
  Sender: FDA-Public Use
  Company Number: CZ-SA-2021SA159090

PATIENT
  Sex: Male

DRUGS (6)
  1. DOCETAXEL [Suspect]
     Active Substance: DOCETAXEL\DOCETAXEL ANHYDROUS
     Indication: Metastases to lung
     Dosage: UNK UNK, QCY
     Dates: start: 201710, end: 201710
  2. DOCETAXEL [Suspect]
     Active Substance: DOCETAXEL\DOCETAXEL ANHYDROUS
     Indication: Hormone-refractory prostate cancer
     Dosage: UNK UNK, QCY
     Dates: start: 201805
  3. DOCETAXEL [Suspect]
     Active Substance: DOCETAXEL\DOCETAXEL ANHYDROUS
     Indication: Retroperitoneal lymphadenopathy
  4. ENZALUTAMIDE [Concomitant]
     Active Substance: ENZALUTAMIDE
     Indication: Hormone-refractory prostate cancer
     Dosage: UNK UNK, QCY
     Dates: start: 201805, end: 201805
  5. ENZALUTAMIDE [Concomitant]
     Active Substance: ENZALUTAMIDE
     Indication: Retroperitoneal lymphadenopathy
  6. LEUPROLIDE ACETATE [Concomitant]
     Active Substance: ISOPROPYL ALCOHOL\LEUPROLIDE ACETATE
     Indication: Prostate cancer

REACTIONS (6)
  - Prostate cancer [Recovered/Resolved]
  - Malignant neoplasm progression [Recovered/Resolved]
  - Prostatic specific antigen increased [Recovered/Resolved]
  - Paraesthesia [Recovered/Resolved]
  - Alopecia [Unknown]
  - Nail dystrophy [Unknown]
